FAERS Safety Report 6943693-7 (Version None)
Quarter: 2010Q3

REPORT INFORMATION
  Report Type: 
  Country: None (occurrence: None)
  Receive Date: 20100826
  Receipt Date: 20100812
  Transmission Date: 20110219
  Serious: Yes (Hospitalization)
  Sender: FDA-Public Use
  Company Number: DE-ELI_LILLY_AND_COMPANY-DE201007004703

PATIENT
  Sex: Male
  Weight: 110 kg

DRUGS (10)
  1. EFFIENT [Suspect]
     Indication: ACUTE MYOCARDIAL INFARCTION
     Dosage: 60 MG, UNKNOWN
     Route: 048
     Dates: start: 20100713
  2. EFFIENT [Suspect]
     Dosage: 10 MG, 2/D
     Route: 048
     Dates: start: 20100720, end: 20100803
  3. EFFIENT [Suspect]
     Dosage: 10 MG, DAILY (1/D)
     Dates: start: 20100804
  4. ASPIRIN [Concomitant]
     Indication: PROPHYLAXIS
     Dosage: 100 UNK, DAILY (1/D)
     Route: 065
  5. HEPARIN [Concomitant]
     Indication: PROPHYLAXIS
     Dosage: UNK, UNKNOWN
     Route: 065
  6. CLEXANE [Concomitant]
     Dosage: 0.4 UNK, DAILY (1/D)
     Route: 058
  7. BISOPROLOL [Concomitant]
     Dosage: 5 UNK, 2/D
     Route: 065
  8. DELIX [Concomitant]
     Dosage: 5 UNK, 2/D
     Route: 065
  9. MAGNESIUM [Concomitant]
     Dosage: UNK, 3/D
     Route: 065
  10. CARMEN [Concomitant]
     Dosage: 10 UNK, UNKNOWN
     Route: 065

REACTIONS (3)
  - DRUG INEFFECTIVE [None]
  - OVERDOSE [None]
  - THROMBOSIS IN DEVICE [None]
